FAERS Safety Report 4360189-X (Version None)
Quarter: 2004Q2

REPORT INFORMATION
  Report Type: 
  Country: None (occurrence: None)
  Receive Date: 20040514
  Receipt Date: 20040505
  Transmission Date: 20050107
  Serious: Yes (Hospitalization)
  Sender: FDA-Public Use
  Company Number: DE-JNJFOC-20040404644

PATIENT
  Age: 48 Year
  Sex: Male
  Weight: 87 kg

DRUGS (9)
  1. REMICADE (INFLIXIMAB, RECOMBINANT) LYOPHILIZED POWDER [Suspect]
     Indication: ANKYLOSING SPONDYLITIS
     Dosage: 400 MG, 1 IN 6 WEEK, INTRAVENOUS
     Route: 042
     Dates: start: 20040203
  2. ATENOLOL [Concomitant]
  3. PRESS 5 (ENALAPRIL MALEATE) [Concomitant]
  4. ALLOPURINOL [Concomitant]
  5. NOVALGIN (METAMIZOLE SODIUM) DROPS [Concomitant]
  6. TILIDIN (TILIDINE) DROPS [Concomitant]
  7. DURAGESIC [Concomitant]
  8. CALCIUM (CALCIUM) [Concomitant]
  9. LEGALON (SILYMARIN) [Concomitant]

REACTIONS (2)
  - ANKYLOSING SPONDYLITIS [None]
  - CONDITION AGGRAVATED [None]
